FAERS Safety Report 12216904 (Version 2)
Quarter: 2016Q3

REPORT INFORMATION
  Report Type: Spontaneous
  Country: US (occurrence: US)
  Receive Date: 20160329
  Receipt Date: 20160901
  Transmission Date: 20161109
  Serious: No
  Sender: FDA-Public Use
  Company Number: US-ASTRAZENECA-2016SE22821

PATIENT
  Age: 29293 Day
  Sex: Male
  Weight: 90.7 kg

DRUGS (1)
  1. BYDUREON [Suspect]
     Active Substance: EXENATIDE
     Indication: ILL-DEFINED DISORDER
     Dosage: 2.0MG UNKNOWN
     Route: 065
     Dates: start: 20160229

REACTIONS (6)
  - Device issue [Unknown]
  - Injection site haemorrhage [Recovered/Resolved]
  - Underdose [Unknown]
  - Injection site pain [Recovered/Resolved]
  - Intentional product misuse [Unknown]
  - Injection site mass [Unknown]

NARRATIVE: CASE EVENT DATE: 20160229
